FAERS Safety Report 15629750 (Version 1)
Quarter: 2018Q4

REPORT INFORMATION
  Report Type: Spontaneous
  Country: JP (occurrence: JP)
  Receive Date: 20181117
  Receipt Date: 20181117
  Transmission Date: 20190205
  Serious: Yes (Death, Hospitalization)
  Sender: FDA-Public Use
  Company Number: JP-ROCHE-2212462

PATIENT
  Age: 81 Year
  Sex: Male

DRUGS (1)
  1. ACTEMRA [Suspect]
     Active Substance: TOCILIZUMAB
     Indication: RHEUMATOID ARTHRITIS
     Dosage: DOSAGE IS UNCERTAIN.
     Route: 065

REACTIONS (11)
  - Road traffic accident [Unknown]
  - Pleural effusion [Unknown]
  - Decreased activity [Unknown]
  - Sepsis [Fatal]
  - Hypotension [Unknown]
  - Shock symptom [Fatal]
  - Cardiac failure [Unknown]
  - Asthenia [Unknown]
  - Back pain [Unknown]
  - Pericardial effusion [Unknown]
  - Infection [Unknown]

NARRATIVE: CASE EVENT DATE: 2018
